FAERS Safety Report 9540639 (Version 2)
Quarter: 2013Q3

REPORT INFORMATION
  Report Type: Spontaneous
  Country: US (occurrence: US)
  Receive Date: 20130920
  Receipt Date: 20130920
  Transmission Date: 20140515
  Serious: Yes (Other)
  Sender: FDA-Public Use
  Company Number: CHPA2013US014166

PATIENT
  Sex: Female

DRUGS (3)
  1. EXCEDRIN EXTRA STRENGTH [Suspect]
     Indication: SINUS DISORDER
     Dosage: 2 DF, PRN
     Route: 048
  2. EXCEDRIN EXTRA STRENGTH [Suspect]
     Indication: BACK PAIN
  3. EXCEDRIN EXTRA STRENGTH [Suspect]
     Indication: HEADACHE

REACTIONS (3)
  - Gallbladder disorder [Recovered/Resolved]
  - Intervertebral disc injury [Recovered/Resolved]
  - Off label use [Unknown]
